FAERS Safety Report 23068850 (Version 1)
Quarter: 2023Q4

REPORT INFORMATION
  Report Type: Spontaneous
  Country: BE (occurrence: BE)
  Receive Date: 20231016
  Receipt Date: 20231016
  Transmission Date: 20240110
  Serious: Yes (Other)
  Sender: FDA-Public Use
  Company Number: None

PATIENT
  Sex: Male

DRUGS (4)
  1. LYRICA [Suspect]
     Active Substance: PREGABALIN
     Indication: Product used for unknown indication
     Dosage: 5,408 TABS OVER FIRST 10 MONTHS (3 TABLETS/DAY)
     Route: 065
     Dates: start: 202205
  2. LYRICA [Suspect]
     Active Substance: PREGABALIN
     Dosage: 5,408 TABS OVER FIRST 10 MONTHS (18 TABLETS/DAY)
     Route: 065
     Dates: start: 2022
  3. DIAZEPAM [Concomitant]
     Active Substance: DIAZEPAM
     Dosage: UNK
     Route: 065
  4. LISINOPRIL [Concomitant]
     Active Substance: LISINOPRIL
     Dosage: UNK
     Route: 065

REACTIONS (4)
  - Pharmaceutical nomadism [Unknown]
  - Product prescribing issue [Unknown]
  - Drug abuse [Unknown]
  - Overdose [Unknown]
